FAERS Safety Report 4607239-0 (Version None)
Quarter: 2005Q1

REPORT INFORMATION
  Report Type: 
  Country: None (occurrence: None)
  Receive Date: 20050314
  Receipt Date: 20050117
  Transmission Date: 20050727
  Serious: Yes (Hospitalization, Other)
  Sender: FDA-Public Use
  Company Number: GB-MERCK-0501GBR00165

PATIENT
  Age: 58 Year
  Sex: Female

DRUGS (9)
  1. SINGULAIR [Suspect]
     Indication: ASTHMA
     Route: 048
     Dates: start: 20000101
  2. VALSARTAN [Concomitant]
     Indication: HYPERTENSION
     Route: 065
  3. INSULIN [Concomitant]
     Indication: DIABETES MELLITUS
     Route: 065
  4. ROSUVASTATIN CALCIUM [Concomitant]
     Route: 065
  5. ACETAMINOPHEN [Concomitant]
     Route: 065
  6. LANSOPRAZOLE [Concomitant]
     Route: 065
  7. ASPIRIN [Concomitant]
     Route: 065
  8. LEVOTHYROXINE SODIUM [Concomitant]
     Route: 065
  9. CLOPIDOGREL BISULFATE [Suspect]
     Route: 065

REACTIONS (4)
  - ANGIOPATHY [None]
  - ARTHRITIS INFECTIVE [None]
  - MYOCARDIAL INFARCTION [None]
  - RESTLESSNESS [None]
